FAERS Safety Report 11423146 (Version 1)
Quarter: 2015Q3

REPORT INFORMATION
  Report Type: Spontaneous
  Country: US (occurrence: None)
  Receive Date: 20150826
  Receipt Date: 20150826
  Transmission Date: 20151125
  Serious: Yes (Hospitalization)
  Sender: FDA-Public Use
  Company Number: None

PATIENT
  Age: 39 Year
  Sex: Female
  Weight: 49.8 kg

DRUGS (1)
  1. PLEGRIDY [Suspect]
     Active Substance: PEGINTERFERON BETA-1A
     Indication: MULTIPLE SCLEROSIS
     Dosage: 63MCG AND 94 MCG DAY 1 AND DAY 15 TWICE MONTHLY
     Dates: start: 20150713, end: 20150717

REACTIONS (3)
  - Multiple sclerosis relapse [None]
  - Abasia [None]
  - Dizziness [None]

NARRATIVE: CASE EVENT DATE: 20150717
